FAERS Safety Report 21211295 (Version 1)
Quarter: 2022Q3

REPORT INFORMATION
  Report Type: Report from Study
  Country: US (occurrence: US)
  Receive Date: 20220815
  Receipt Date: 20220815
  Transmission Date: 20221026
  Serious: Yes (Hospitalization)
  Sender: FDA-Public Use
  Company Number: US-Accord-272792

PATIENT
  Age: 46 Year
  Sex: Female
  Weight: 136.53 kg

DRUGS (5)
  1. CLOZAPINE [Suspect]
     Active Substance: CLOZAPINE
     Indication: Schizoaffective disorder bipolar type
     Dosage: 50MG, ORALLY, EVERY MORNING, AND 200MG, ORALLY, AT BEDTIME DAILY
     Route: 048
  2. PROZAC [Concomitant]
     Active Substance: FLUOXETINE HYDROCHLORIDE
     Dosage: 60MG, DAILY
     Route: 048
  3. RITALIN [Concomitant]
     Active Substance: METHYLPHENIDATE HYDROCHLORIDE
     Dosage: 5MG, TWICE DAILY
     Route: 048
  4. CLONAZEPAM [Concomitant]
     Active Substance: CLONAZEPAM
     Dosage: 0.5MG EVERY MORNING AND AFTERNOON, AND 1MG AT BEDTIME?DAILY
  5. PRAZOSIN [Concomitant]
     Active Substance: PRAZOSIN
     Dosage: 2MG, NIGHTLY DAILY
     Route: 048

REACTIONS (4)
  - Suicide attempt [Unknown]
  - Wound [Unknown]
  - Intrusive thoughts [Unknown]
  - Drooling [Unknown]

NARRATIVE: CASE EVENT DATE: 20220725
